FAERS Safety Report 9942366 (Version 2)
Quarter: 2014Q1

REPORT INFORMATION
  Report Type: Spontaneous
  Country: GR (occurrence: GR)
  Receive Date: 20140303
  Receipt Date: 20140303
  Transmission Date: 20141002
  Serious: Yes (Other)
  Sender: FDA-Public Use
  Company Number: GR-PFIZER INC-2014045907

PATIENT
  Sex: Female

DRUGS (1)
  1. XALATAN [Suspect]
     Indication: OCULAR HYPERTENSION
     Dosage: 1 GTT, 1X/DAY (1 DROP DAILY IN THE EVENING)
     Dates: end: 201402

REACTIONS (3)
  - Eye oedema [Not Recovered/Not Resolved]
  - Nail discolouration [Not Recovered/Not Resolved]
  - Eye colour change [Not Recovered/Not Resolved]
